FAERS Safety Report 21756453 (Version 1)
Quarter: 2022Q4

REPORT INFORMATION
  Report Type: Spontaneous
  Country: JP (occurrence: None)
  Receive Date: 20221220
  Receipt Date: 20221220
  Transmission Date: 20230112
  Serious: Yes (Other)
  Sender: FDA-Public Use
  Company Number: 2022A389472

PATIENT
  Age: 75 Year
  Sex: Male

DRUGS (3)
  1. ONDEXXYA [Suspect]
     Active Substance: ANDEXANET ALFA
     Indication: Subarachnoid haemorrhage
     Dosage: 800 MG INTRAVENOUSLY AT A RATE OF 30 MG/MIN FOLLOWED BY 960 MG INTRAVENOUSLY AT A RATE OF 8 MG/MI...
     Route: 042
     Dates: start: 20221121
  2. HEPARIN [Suspect]
     Active Substance: HEPARIN SODIUM
     Dosage: DOSE UNKNOWN
     Route: 065
  3. ELIQUIS [Concomitant]
     Active Substance: APIXABAN
     Dosage: DOSE UNKNOWN
     Route: 065
     Dates: start: 20221121

REACTIONS (2)
  - Cerebral infarction [Not Recovered/Not Resolved]
  - Therapeutic product effect decreased [Unknown]

NARRATIVE: CASE EVENT DATE: 20221122
